APPROVED DRUG PRODUCT: PAROXETINE
Active Ingredient: PAROXETINE HYDROCHLORIDE
Strength: EQ 10MG BASE
Dosage Form/Route: TABLET;ORAL
Application: A203854 | Product #001 | TE Code: AB
Applicant: PRINSTON PHARMACEUTICAL INC
Approved: Oct 31, 2014 | RLD: No | RS: No | Type: RX